FAERS Safety Report 6083063-X (Version None)
Quarter: 2009Q1

REPORT INFORMATION
  Report Type: 
  Country: None (occurrence: None)
  Receive Date: 20090218
  Receipt Date: 20090211
  Transmission Date: 20090719
  Serious: Yes (Other)
  Sender: FDA-Public Use
  Company Number: IE-MERCK-0902GBR00065

PATIENT
  Age: 82 Year
  Sex: Female

DRUGS (5)
  1. COZAAR [Suspect]
     Indication: HYPERTENSION
     Route: 048
     Dates: start: 20061001
  2. ZOLPIDEM TARTRATE [Concomitant]
     Route: 048
  3. BRINZOLAMIDE [Concomitant]
     Route: 065
  4. GLUCOSAMINE SULFATE [Concomitant]
     Route: 065
  5. TRAVOPROST [Concomitant]
     Route: 065

REACTIONS (1)
  - CANDIDIASIS [None]
